FAERS Safety Report 22800437 (Version 4)
Quarter: 2024Q3

REPORT INFORMATION
  Report Type: Report from Study
  Country: KR (occurrence: KR)
  Receive Date: 20230808
  Receipt Date: 20240905
  Transmission Date: 20241017
  Serious: Yes (Hospitalization)
  Sender: NOVARTIS
  Company Number: KR-002147023-NVSC2023KR172412

PATIENT
  Age: 61 Year
  Sex: Female
  Weight: 50.5 kg

DRUGS (23)
  1. KISQALI [Suspect]
     Active Substance: RIBOCICLIB
     Indication: Hormone receptor positive HER2 negative breast cancer
     Dosage: 600 UNK
     Route: 048
     Dates: start: 20230608, end: 20240117
  2. KISQALI [Suspect]
     Active Substance: RIBOCICLIB
     Dosage: 400 MG
     Route: 065
  3. LETROZOLE [Concomitant]
     Active Substance: LETROZOLE
     Indication: Breast cancer
     Dosage: 1 DOSAGE FORM (1 T) (CINFA)
     Route: 065
     Dates: start: 20230608, end: 20230705
  4. LETROZOLE [Concomitant]
     Active Substance: LETROZOLE
     Dosage: 1 DOSAGE FORM (1 T) (CINFA)
     Route: 065
     Dates: start: 20230706, end: 20230712
  5. XGEVA [Concomitant]
     Active Substance: DENOSUMAB
     Indication: Prophylaxis
     Dosage: 120 MG
     Route: 065
     Dates: start: 20230608, end: 20230608
  6. XGEVA [Concomitant]
     Active Substance: DENOSUMAB
     Dosage: 1 DOSAGE FORM
     Route: 065
     Dates: start: 20230919, end: 20230919
  7. XGEVA [Concomitant]
     Active Substance: DENOSUMAB
     Dosage: 1 DOSAGE FORM
     Route: 065
     Dates: start: 20231005, end: 20231005
  8. XGEVA [Concomitant]
     Active Substance: DENOSUMAB
     Dosage: 1 DOSAGE FORM
     Route: 065
     Dates: start: 20231116, end: 20231116
  9. XGEVA [Concomitant]
     Active Substance: DENOSUMAB
     Dosage: 1 DOSAGE FORM
     Route: 065
     Dates: start: 20231130, end: 20231130
  10. TRAPHEN [Concomitant]
     Indication: Pyrexia
     Dosage: 1 DOSAGE FORM (1 T) (ER)
     Route: 065
     Dates: start: 20230608, end: 20230614
  11. TRAPHEN [Concomitant]
     Dosage: 1 DOSAGE FORM (1T)
     Route: 065
     Dates: start: 20230630, end: 20230630
  12. LENOGRASTIM [Concomitant]
     Active Substance: LENOGRASTIM
     Indication: Neutropenia
     Dosage: 250 UG
     Route: 065
     Dates: start: 20230622, end: 20230622
  13. LENOGRASTIM [Concomitant]
     Active Substance: LENOGRASTIM
     Dosage: 250 UG
     Route: 065
     Dates: start: 20230630, end: 20230630
  14. LENOGRASTIM [Concomitant]
     Active Substance: LENOGRASTIM
     Dosage: 250 UG
     Route: 065
     Dates: start: 20230706, end: 20230706
  15. ANAX [Concomitant]
     Indication: Pyrexia
     Dosage: 1 DOSAGE FORM (1 T)
     Route: 065
     Dates: start: 20230622, end: 20230627
  16. ANAX [Concomitant]
     Indication: Prophylaxis
  17. FERROUS SULFATE\PROTEASE [Concomitant]
     Active Substance: FERROUS SULFATE\PROTEASE
     Indication: Prophylaxis
     Dosage: 1 DOSAGE FORM (1 T)
     Route: 065
     Dates: start: 20230629, end: 20230728
  18. DARBEPOETIN ALFA [Concomitant]
     Active Substance: DARBEPOETIN ALFA
     Indication: Prophylaxis
     Dosage: 60 UG (STRENGTH 60)
     Route: 065
     Dates: start: 20230629, end: 20230629
  19. SUSPAN [Concomitant]
     Indication: Prophylaxis
     Dosage: 650 MG
     Route: 065
     Dates: start: 20230702, end: 20230702
  20. NIZAXID [Concomitant]
     Indication: Prophylaxis
     Dosage: 1 DOSAGE FORM
     Route: 065
     Dates: start: 20230822, end: 20230904
  21. AXID [Concomitant]
     Active Substance: NIZATIDINE
     Indication: Prophylaxis
     Dosage: 1 DOSAGE FORM
     Route: 065
     Dates: start: 20230919, end: 20231016
  22. LINAGLIPTIN\METFORMIN HYDROCHLORIDE [Concomitant]
     Active Substance: LINAGLIPTIN\METFORMIN HYDROCHLORIDE
     Indication: Diabetes mellitus
     Dosage: 1 DOSAGE FORM
     Route: 065
     Dates: start: 20230506
  23. CREAZIN [Concomitant]
     Indication: Hyperlipidaemia
     Dosage: 1 DOSAGE FORM (CREAZIN PLUS)
     Route: 065
     Dates: start: 20230701, end: 20230705

REACTIONS (1)
  - Myelosuppression [Recovered/Resolved]

NARRATIVE: CASE EVENT DATE: 20230622
